FAERS Safety Report 18340710 (Version 2)
Quarter: 2020Q4

REPORT INFORMATION
  Report Type: Spontaneous
  Country: DE (occurrence: DE)
  Receive Date: 20201002
  Receipt Date: 20201214
  Transmission Date: 20210113
  Serious: Yes (Hospitalization, Other)
  Sender: FDA-Public Use
  Company Number: DE-LUNDBECK-DKLU3021932

PATIENT
  Age: 41 Year
  Sex: Male

DRUGS (5)
  1. FLUPHENAZINE (SALT NOT SPECIFIED) [Concomitant]
     Active Substance: FLUPHENAZINE
     Indication: SCHIZOPHRENIA
     Route: 065
  2. DIAZEPAM. [Suspect]
     Active Substance: DIAZEPAM
     Indication: SCHIZOPHRENIA
     Route: 065
  3. LORMETAZEPAM [Suspect]
     Active Substance: LORMETAZEPAM
     Indication: SCHIZOPHRENIA
     Route: 065
  4. CLOBAZAM. [Suspect]
     Active Substance: CLOBAZAM
     Indication: SCHIZOPHRENIA
     Route: 065
  5. CLOZAPINE. [Suspect]
     Active Substance: CLOZAPINE
     Indication: SCHIZOPHRENIA
     Route: 065

REACTIONS (5)
  - Circulatory collapse [Recovered/Resolved]
  - Delirium [Recovered/Resolved]
  - Respiratory arrest [Recovered/Resolved]
  - Loss of consciousness [Recovered/Resolved]
  - Salivary hypersecretion [Recovered/Resolved]
